FAERS Safety Report 9011571 (Version 2)
Quarter: 2013Q1

REPORT INFORMATION
  Report Type: Spontaneous
  Country: DK (occurrence: DK)
  Receive Date: 20130108
  Receipt Date: 20130120
  Transmission Date: 20140127
  Serious: Yes (Hospitalization, Other)
  Sender: FDA-Public Use
  Company Number: DK-AMGEN-DNKSP2013000397

PATIENT
  Age: 75 Year
  Sex: Female
  Weight: 65 kg

DRUGS (19)
  1. PEGFILGRASTIM [Suspect]
     Indication: PRODUCT USED FOR UNKNOWN INDICATION
     Dosage: UNK
  2. CYCLOPHOSPHAMIDE [Suspect]
     Indication: BREAST CANCER
     Dosage: 900 MG, Q3WK
     Route: 042
     Dates: start: 20121114, end: 20121205
  3. CYCLOPHOSPHAMIDE [Suspect]
     Dosage: 900 MG, Q3WK
     Route: 042
     Dates: start: 20121205
  4. CYCLOPHOSPHAMIDE [Suspect]
     Dosage: 500 MG, Q3WK
     Route: 065
  5. EPIRUBICIN [Suspect]
     Indication: BREAST CANCER
     Dosage: 150 MG, Q3WK
     Route: 042
     Dates: start: 20121114
  6. EPIRUBICIN [Suspect]
     Dosage: 900 MG, Q3WK
     Route: 042
     Dates: start: 20121205
  7. EPIRUBICIN [Suspect]
     Dosage: 85 MG, Q3WK
     Route: 065
  8. FLUOROURACIL [Suspect]
     Indication: BREAST CANCER
     Dosage: 900 MG, Q3WK
     Route: 042
     Dates: start: 20121114, end: 20121205
  9. FLUOROURACIL [Suspect]
     Dosage: 900 MG, Q3WK
     Route: 042
     Dates: start: 20121205
  10. FLUOROURACIL [Suspect]
     Dosage: 500 MG, Q3WK
     Route: 065
  11. PREDNISOLON                        /00016201/ [Concomitant]
     Indication: PRODUCT USED FOR UNKNOWN INDICATION
     Dosage: 50 MG ON DAY 1.
     Dates: start: 20121114
  12. PREDNISOLON                        /00016201/ [Concomitant]
     Dosage: 25 MG ON DAY 2 AND3
  13. ONDANSETRON [Concomitant]
     Indication: PRODUCT USED FOR UNKNOWN INDICATION
     Dosage: 16 MG ON DAY1
     Dates: start: 20121114
  14. ONDANSETRON [Concomitant]
     Dosage: 8 MG ON DAY 2
  15. EMEND                              /01627301/ [Concomitant]
     Indication: PRODUCT USED FOR UNKNOWN INDICATION
     Dosage: 120 MG ON DAY 1
     Dates: start: 20121114
  16. EMEND                              /01627301/ [Concomitant]
     Dosage: 80 MG ON DAY 2 AND 3.
  17. EMPERAL [Concomitant]
     Indication: PRODUCT USED FOR UNKNOWN INDICATION
     Dosage: 10 TO 20 MG  PRN
     Dates: start: 20121114
  18. MULTIVITAMINS, PLAIN [Concomitant]
     Dosage: UNK
  19. IRON [Concomitant]
     Dosage: UNK

REACTIONS (2)
  - Pyrexia [Recovered/Resolved]
  - Febrile neutropenia [Recovered/Resolved]
